FAERS Safety Report 10059274 (Version 1)
Quarter: 2014Q2

REPORT INFORMATION
  Report Type: Spontaneous
  Country: FR (occurrence: FR)
  Receive Date: 20140404
  Receipt Date: 20140404
  Transmission Date: 20141212
  Serious: Yes (Other)
  Sender: FDA-Public Use
  Company Number: FR-PFIZER INC-2014091018

PATIENT
  Age: 66 Year
  Sex: Male
  Weight: 90 kg

DRUGS (7)
  1. CADUET [Suspect]
     Dosage: [AMLODIPINE 5 MG]/[ATORVASTATIN 10 MG] ONCE DAILY
     Route: 048
     Dates: start: 2012
  2. PROCORALAN [Concomitant]
     Dosage: 7.5 MG, UNK
     Route: 048
     Dates: start: 2012
  3. SEVIKAR [Concomitant]
     Dosage: UNK
     Route: 048
     Dates: start: 2012
  4. EZETROL [Concomitant]
     Dosage: 10 MG, DAILY
     Route: 048
     Dates: start: 2012
  5. XATRAL - SLOW RELEASE [Concomitant]
     Dosage: 10 MG, UNK
     Route: 048
     Dates: start: 2012
  6. TAMSULOSINE BIOGARAN LP [Concomitant]
     Dosage: 0.4 MG, UNK
     Dates: start: 2012
  7. INIPOMP [Concomitant]
     Dosage: UNK
     Dates: start: 2012

REACTIONS (3)
  - Subacute cutaneous lupus erythematosus [Not Recovered/Not Resolved]
  - Antinuclear antibody positive [Unknown]
  - Vitamin D deficiency [Unknown]
